FAERS Safety Report 24137454 (Version 1)
Quarter: 2024Q3

REPORT INFORMATION
  Report Type: Spontaneous
  Country: US (occurrence: US)
  Receive Date: 20240725
  Receipt Date: 20240725
  Transmission Date: 20241016
  Serious: Yes (Other)
  Sender: NOVARTIS
  Company Number: US-002147023-NVSC2024US149517

PATIENT
  Sex: Female

DRUGS (4)
  1. LETROZOLE [Suspect]
     Active Substance: LETROZOLE
     Indication: Product used for unknown indication
     Dosage: UNK
     Route: 065
  2. IBRANCE [Suspect]
     Active Substance: PALBOCICLIB
     Indication: Product used for unknown indication
     Dosage: 100 MG
     Route: 065
  3. FASLODEX [Suspect]
     Active Substance: FULVESTRANT
     Indication: Product used for unknown indication
     Dosage: UNK
     Route: 065
  4. LOSARTAN [Suspect]
     Active Substance: LOSARTAN
     Indication: Product used for unknown indication
     Dosage: UNK
     Route: 065

REACTIONS (23)
  - Neoplasm malignant [Unknown]
  - Thrombocytopenia [Unknown]
  - Rash erythematous [Unknown]
  - Contusion [Unknown]
  - Epistaxis [Recovered/Resolved]
  - Cough [Unknown]
  - Chest pain [Recovered/Resolved]
  - Disease progression [Unknown]
  - Peripheral swelling [Unknown]
  - Fatigue [Unknown]
  - Product dose omission issue [Unknown]
  - Dyspepsia [Recovered/Resolved]
  - Rash [Unknown]
  - Oropharyngeal pain [Unknown]
  - Sleep disorder [Unknown]
  - Ulcer [Unknown]
  - Erythema [Unknown]
  - Heart rate increased [Unknown]
  - Immune system disorder [Unknown]
  - Lacrimation increased [Unknown]
  - Sinus disorder [Unknown]
  - Tumour marker increased [Unknown]
  - Blood pressure measurement [Unknown]
